FAERS Safety Report 5255555-4 (Version None)
Quarter: 2007Q1

REPORT INFORMATION
  Report Type: 
  Country: None (occurrence: None)
  Receive Date: 20070305
  Receipt Date: 20070223
  Transmission Date: 20070707
  Serious: Yes (Other)
  Sender: FDA-Public Use
  Company Number: FR-GILEAD-2006-0010767

PATIENT
  Age: 46 Year
  Sex: Male
  Weight: 85 kg

DRUGS (2)
  1. HEPSERA [Suspect]
     Indication: HEPATITIS B VIRUS
     Dates: start: 20051226, end: 20061201
  2. INSULIN [Concomitant]
     Dates: start: 19590101

REACTIONS (1)
  - RENAL FAILURE CHRONIC [None]
